FAERS Safety Report 19451169 (Version 1)
Quarter: 2021Q2

REPORT INFORMATION
  Report Type: Spontaneous
  Country: US (occurrence: US)
  Receive Date: 20210622
  Receipt Date: 20210622
  Transmission Date: 20210717
  Serious: Yes (Other)
  Sender: FDA-Public Use
  Company Number: None

PATIENT
  Age: 32 Year
  Sex: Female
  Weight: 65.25 kg

DRUGS (1)
  1. CLONAZEPAM. [Suspect]
     Active Substance: CLONAZEPAM
     Indication: ANXIETY
     Dates: start: 20200901

REACTIONS (8)
  - Insomnia [None]
  - Depressed mood [None]
  - Depression [None]
  - Disorientation [None]
  - Pyrexia [None]
  - Decreased appetite [None]
  - Mood swings [None]
  - Nervousness [None]

NARRATIVE: CASE EVENT DATE: 20210618
